FAERS Safety Report 24845835 (Version 2)
Quarter: 2025Q1

REPORT INFORMATION
  Report Type: Spontaneous
  Country: KR (occurrence: KR)
  Receive Date: 20250115
  Receipt Date: 20250123
  Transmission Date: 20250408
  Serious: Yes (Hospitalization)
  Sender: AMGEN
  Company Number: KR-AMGEN-KORSP2025002926

PATIENT
  Age: 43 Year
  Sex: Female
  Weight: 58.7 kg

DRUGS (5)
  1. PROLIA [Suspect]
     Active Substance: DENOSUMAB
     Indication: Prophylaxis
     Route: 058
     Dates: start: 20211012, end: 20241011
  2. TALAZOPARIB [Suspect]
     Active Substance: TALAZOPARIB
     Indication: Product used for unknown indication
     Dosage: 1 MILLIGRAM, QD
     Route: 065
     Dates: start: 20230620
  3. Bactacin [Concomitant]
     Indication: Periodontitis
     Route: 040
     Dates: start: 20241231, end: 20250106
  4. TRAMADOL HYDROCHLORIDE [Concomitant]
     Active Substance: TRAMADOL HYDROCHLORIDE
     Indication: Temporomandibular pain and dysfunction syndrome
     Route: 040
     Dates: start: 20241231, end: 20250106
  5. ACETAMINOPHEN [Concomitant]
     Active Substance: ACETAMINOPHEN
     Indication: Temporomandibular pain and dysfunction syndrome
     Route: 040
     Dates: start: 20241231, end: 20250106

REACTIONS (2)
  - Periodontitis [Recovered/Resolved]
  - Off label use [Unknown]

NARRATIVE: CASE EVENT DATE: 20211012
